FAERS Safety Report 6817888-7 (Version None)
Quarter: 2010Q3

REPORT INFORMATION
  Report Type: 
  Country: None (occurrence: None)
  Receive Date: 20100706
  Receipt Date: 20100311
  Transmission Date: 20110219
  Serious: Yes (Other)
  Sender: FDA-Public Use
  Company Number: US-ASTRAZENECA-2008UW23283

PATIENT
  Age: 9899 Day
  Sex: Male

DRUGS (9)
  1. SEROQUEL [Suspect]
     Dosage: 100 MG 3 TABLETS HS
     Route: 048
     Dates: start: 20050929
  2. SEROQUEL [Suspect]
     Route: 048
     Dates: start: 20031009
  3. LEXAPRO [Concomitant]
     Dates: start: 20050929
  4. KLONOPIN [Concomitant]
     Dates: start: 20060913
  5. ABILIFY [Concomitant]
     Dates: start: 20060110
  6. ZYPREXA [Concomitant]
     Dates: start: 20060110
  7. LOTREL [Concomitant]
     Dates: start: 20060201
  8. ATENOLOL [Concomitant]
     Dates: start: 20060201
  9. AVANDIA [Concomitant]
     Dates: start: 20060201

REACTIONS (5)
  - KETOACIDOSIS [None]
  - PANCREATITIS [None]
  - PANCREATITIS CHRONIC [None]
  - RETINOPATHY [None]
  - TYPE 2 DIABETES MELLITUS [None]
